FAERS Safety Report 9976526 (Version 1)
Quarter: 2014Q1

REPORT INFORMATION
  Report Type: Report from Study
  Country: US (occurrence: US)
  Receive Date: 20140306
  Receipt Date: 20140306
  Transmission Date: 20141002
  Serious: No
  Sender: FDA-Public Use
  Company Number: US-ABBVIE-13P-163-1166729-00

PATIENT
  Age: 19 Year
  Sex: Female
  Weight: 54.48 kg

DRUGS (4)
  1. HUMIRA [Suspect]
     Indication: COLITIS ULCERATIVE
     Dates: start: 20130829, end: 20130829
  2. HUMIRA [Suspect]
     Dates: start: 20130912, end: 20131024
  3. PREDNISONE [Concomitant]
     Indication: COLITIS ULCERATIVE
  4. IRON [Concomitant]
     Indication: ANAEMIA

REACTIONS (9)
  - Extra dose administered [Recovered/Resolved]
  - Hypoaesthesia [Not Recovered/Not Resolved]
  - Headache [Not Recovered/Not Resolved]
  - Headache [Not Recovered/Not Resolved]
  - Paraesthesia [Not Recovered/Not Resolved]
  - Abdominal discomfort [Unknown]
  - Burning sensation [Unknown]
  - Feeling hot [Unknown]
  - Hyperhidrosis [Unknown]
